FAERS Safety Report 5353569-7 (Version None)
Quarter: 2007Q2

REPORT INFORMATION
  Report Type: 
  Country: None (occurrence: None)
  Receive Date: 20070608
  Receipt Date: 20070531
  Transmission Date: 20071010
  Serious: Yes (Other)
  Sender: FDA-Public Use
  Company Number: GXKR2007DK04767

PATIENT
  Age: 69 Year
  Sex: Male

DRUGS (2)
  1. LANSOPRAZOLE HEXAL (NGX)(LANSOPRAZOLE) UNKNOWN [Suspect]
     Indication: DYSPEPSIA
     Dosage: UNK, UNK, ORAL
     Route: 048
     Dates: start: 20060201
  2. GABAPENTIN [Suspect]
     Dosage: UP TO 900 MG DAILY, ORAL
     Route: 048

REACTIONS (22)
  - ALOPECIA [None]
  - ARTHRALGIA [None]
  - BACK PAIN [None]
  - CONSTIPATION [None]
  - COUGH [None]
  - DIARRHOEA [None]
  - DRY MOUTH [None]
  - DYSPNOEA [None]
  - ERECTILE DYSFUNCTION [None]
  - FLUID RETENTION [None]
  - GINGIVAL BLEEDING [None]
  - GYNAECOMASTIA [None]
  - HYPOTRICHOSIS [None]
  - MUCOSAL INFECTION [None]
  - MYALGIA [None]
  - NASAL MUCOSAL DISORDER [None]
  - PRURITUS [None]
  - RASH [None]
  - SKIN DISORDER [None]
  - SWEAT GLAND DISORDER [None]
  - VOMITING [None]
  - WEIGHT INCREASED [None]
